FAERS Safety Report 11917808 (Version 3)
Quarter: 2016Q3

REPORT INFORMATION
  Report Type: Spontaneous
  Country: LU (occurrence: LU)
  Receive Date: 20160114
  Receipt Date: 20160914
  Transmission Date: 20161109
  Serious: Yes (Death, Other)
  Sender: FDA-Public Use
  Company Number: LU-BIOGEN-2015BI138305

PATIENT
  Sex: Male

DRUGS (2)
  1. TYSABRI [Suspect]
     Active Substance: NATALIZUMAB
     Route: 042
     Dates: end: 201509
  2. TYSABRI [Suspect]
     Active Substance: NATALIZUMAB
     Indication: MULTIPLE SCLEROSIS
     Route: 042
     Dates: start: 200808, end: 201406

REACTIONS (3)
  - Hyperkalaemia [Unknown]
  - Hypernatraemia [Fatal]
  - Progressive multifocal leukoencephalopathy [Unknown]
